FAERS Safety Report 18072684 (Version 1)
Quarter: 2020Q3

REPORT INFORMATION
  Report Type: Spontaneous
  Country: US (occurrence: US)
  Receive Date: 20200727
  Receipt Date: 20200727
  Transmission Date: 20201103
  Serious: No
  Sender: FDA-Public Use
  Company Number: None

PATIENT
  Age: 69 Year
  Sex: Male
  Weight: 84 kg

DRUGS (1)
  1. PENICILLIN (PENICILLIN G 25000UNT TAB) [Suspect]
     Active Substance: PENICILLIN G

REACTIONS (4)
  - Anaphylactic reaction [None]
  - Urticaria [None]
  - Angioedema [None]
  - Rash [None]

NARRATIVE: CASE EVENT DATE: 20090130
